FAERS Safety Report 21206838 (Version 5)
Quarter: 2024Q4

REPORT INFORMATION
  Report Type: Spontaneous
  Country: US (occurrence: US)
  Receive Date: 20220812
  Receipt Date: 20241101
  Transmission Date: 20250115
  Serious: Yes (Life-Threatening, Other)
  Sender: PFIZER
  Company Number: US-PFIZER INC-202201054586

PATIENT
  Age: 64 Year
  Sex: Female
  Weight: 87.2 kg

DRUGS (2)
  1. EPINEPHRINE [Suspect]
     Active Substance: EPINEPHRINE
     Indication: Cardiac arrest
     Dosage: 3 ROUNDS, I MORE
     Dates: start: 20220727
  2. NARCAN [Suspect]
     Active Substance: NALOXONE HYDROCHLORIDE
     Indication: Cardiac arrest
     Dosage: ONE DOSE WAS GIVEN IN THE AMBULANCE AND ONE DOSE IN THE ER
     Dates: start: 20220727

REACTIONS (1)
  - Drug ineffective [Unknown]
